FAERS Safety Report 12778905 (Version 1)
Quarter: 2016Q3

REPORT INFORMATION
  Report Type: Spontaneous
  Country: US (occurrence: US)
  Receive Date: 20160926
  Receipt Date: 20160926
  Transmission Date: 20161109
  Serious: No
  Sender: FDA-Public Use
  Company Number: US-JAZZ-2016-US-010980

PATIENT
  Sex: Female

DRUGS (34)
  1. CLINDAMYCIN HCL [Concomitant]
     Active Substance: CLINDAMYCIN HYDROCHLORIDE
  2. MAGNESIUM OXIDE. [Concomitant]
     Active Substance: MAGNESIUM OXIDE
  3. TURMERIC [Concomitant]
     Active Substance: TURMERIC
  4. HYDROXYZINE HCL [Concomitant]
     Active Substance: HYDROXYZINE HYDROCHLORIDE
  5. TECFIDERA [Suspect]
     Active Substance: DIMETHYL FUMARATE
     Indication: PRODUCT USED FOR UNKNOWN INDICATION
     Dosage: UNKNOWN DOSE
  6. BYSTOLIC [Concomitant]
     Active Substance: NEBIVOLOL HYDROCHLORIDE
  7. ADVIL [Concomitant]
     Active Substance: IBUPROFEN
  8. BIOTIN [Concomitant]
     Active Substance: BIOTIN
  9. CINNAMON. [Concomitant]
     Active Substance: CINNAMON
  10. GINGER. [Concomitant]
     Active Substance: GINGER
  11. MILK THISTLE [Concomitant]
     Active Substance: MILK THISTLE
  12. IRON [Concomitant]
     Active Substance: IRON
  13. PAINBLOK [Concomitant]
  14. PRISTIQ EXTENDED-RELEASE [Concomitant]
     Active Substance: DESVENLAFAXINE SUCCINATE
  15. COUMADIN [Concomitant]
     Active Substance: WARFARIN SODIUM
  16. XARELTO [Concomitant]
     Active Substance: RIVAROXABAN
  17. LOMOTIL [Concomitant]
     Active Substance: ATROPINE SULFATE\DIPHENOXYLATE HYDROCHLORIDE
  18. RITALIN LA [Concomitant]
     Active Substance: METHYLPHENIDATE HYDROCHLORIDE
  19. ALIGN [Concomitant]
     Active Substance: BIFIDOBACTERIUM LONGUM SUBSP. INFANTIS
  20. BETASERON [Concomitant]
     Active Substance: INTERFERON BETA-1B
  21. NUVIGIL [Concomitant]
     Active Substance: ARMODAFINIL
  22. BACLOFEN. [Concomitant]
     Active Substance: BACLOFEN
  23. TRAMADOL HCL ER [Concomitant]
  24. XYREM [Suspect]
     Active Substance: SODIUM OXYBATE
     Dosage: 4.5 G, BID
     Route: 048
     Dates: start: 201408
  25. DEXILANT DR [Concomitant]
  26. XYREM [Suspect]
     Active Substance: SODIUM OXYBATE
     Indication: NARCOLEPSY
     Dosage: 2.25 G, BID
     Route: 048
     Dates: start: 201202, end: 201202
  27. XYREM [Suspect]
     Active Substance: SODIUM OXYBATE
     Indication: CATAPLEXY
     Dosage: DOSE ADJUSTMENTS
     Route: 048
     Dates: start: 201202, end: 201408
  28. TYLENOL [Concomitant]
     Active Substance: ACETAMINOPHEN
  29. AMOXICILLIN. [Concomitant]
     Active Substance: AMOXICILLIN
  30. GABAPENTIN. [Concomitant]
     Active Substance: GABAPENTIN
  31. TRIAMCINOLONE [Concomitant]
     Active Substance: TRIAMCINOLONE
  32. CLONAZEPAM. [Concomitant]
     Active Substance: CLONAZEPAM
  33. DIPHENHYDRAMINE. [Concomitant]
     Active Substance: DIPHENHYDRAMINE
  34. NORCO [Concomitant]
     Active Substance: ACETAMINOPHEN\HYDROCODONE BITARTRATE

REACTIONS (2)
  - Dry skin [Unknown]
  - Flushing [Unknown]
